FAERS Safety Report 6956880-9 (Version None)
Quarter: 2010Q3

REPORT INFORMATION
  Report Type: 
  Country: None (occurrence: None)
  Receive Date: 20100830
  Receipt Date: 20100820
  Transmission Date: 20110219
  Serious: Yes (Hospitalization, Other)
  Sender: FDA-Public Use
  Company Number: US-AMGEN-QUU409923

PATIENT
  Sex: Female
  Weight: 109.9 kg

DRUGS (8)
  1. NPLATE [Suspect]
     Indication: IDIOPATHIC THROMBOCYTOPENIC PURPURA
     Dates: start: 20081203
  2. IMMU-G [Concomitant]
     Route: 042
     Dates: start: 20080812
  3. AMOXICILLIN [Concomitant]
     Route: 048
  4. CHLORHEXIDINE GLUCONATE [Concomitant]
     Route: 048
  5. LISINOPRIL [Concomitant]
     Route: 048
  6. ACTOS [Concomitant]
     Route: 048
  7. OXYGEN [Concomitant]
  8. CORTICOSTEROIDS [Concomitant]
     Dates: start: 20080327

REACTIONS (9)
  - ASCITES [None]
  - GENERALISED OEDEMA [None]
  - HEPATIC CIRRHOSIS [None]
  - HEPATIC STEATOSIS [None]
  - HYPOXIA [None]
  - LOCALISED OEDEMA [None]
  - PLEURAL EFFUSION [None]
  - PULMONARY OEDEMA [None]
  - SPLENOMEGALY [None]
